FAERS Safety Report 14813615 (Version 1)
Quarter: 2018Q2

REPORT INFORMATION
  Report Type: Spontaneous
  Country: DE (occurrence: DE)
  Receive Date: 20180426
  Receipt Date: 20180426
  Transmission Date: 20180711
  Serious: Yes (Hospitalization)
  Sender: FDA-Public Use
  Company Number: DE-TEVA-2018-DE-886036

PATIENT
  Age: 72 Year
  Sex: Female
  Weight: 88 kg

DRUGS (11)
  1. AVASTIN [Suspect]
     Active Substance: BEVACIZUMAB
     Dates: start: 20101223, end: 20101223
  2. DOCETAXEL. [Suspect]
     Active Substance: DOCETAXEL
     Dates: start: 20110224
  3. DOCETAXEL. [Suspect]
     Active Substance: DOCETAXEL
     Dates: start: 20101109
  4. DOCETAXEL. [Suspect]
     Active Substance: DOCETAXEL
     Dates: start: 20101223
  5. DOCETAXEL. [Suspect]
     Active Substance: DOCETAXEL
     Dates: start: 20110203
  6. DOCETAXEL. [Suspect]
     Active Substance: DOCETAXEL
     Dates: start: 20110113
  7. DOCETAXEL. [Suspect]
     Active Substance: DOCETAXEL
     Route: 042
     Dates: start: 20101202
  8. CIPROFLOXACIN. [Concomitant]
     Active Substance: CIPROFLOXACIN
     Route: 065
     Dates: start: 20110630, end: 20110704
  9. MONO-EMBOLEX [Concomitant]
     Active Substance: CERTOPARIN SODIUM
     Route: 058
     Dates: start: 20101101
  10. AVASTIN [Suspect]
     Active Substance: BEVACIZUMAB
     Indication: BREAST CANCER METASTATIC
     Dosage: FIRST CYCLE
     Route: 042
     Dates: start: 20101109, end: 20101109
  11. ATENOLOL. [Concomitant]
     Active Substance: ATENOLOL
     Dosage: 50 MILLIGRAM DAILY; DAILY DOSE: 50 MG MILLGRAM(S) EVERY DAYS
     Route: 048
     Dates: start: 2010

REACTIONS (4)
  - Ageusia [Recovered/Resolved]
  - Fatigue [Recovered/Resolved]
  - Febrile neutropenia [Recovered/Resolved]
  - Dysphonia [Not Recovered/Not Resolved]

NARRATIVE: CASE EVENT DATE: 20101115
